FAERS Safety Report 5209286-7 (Version None)
Quarter: 2007Q1

REPORT INFORMATION
  Report Type: 
  Country: None (occurrence: None)
  Receive Date: 20070116
  Receipt Date: 20070109
  Transmission Date: 20070707
  Serious: Yes (Other)
  Sender: FDA-Public Use
  Company Number: DE-SANOFI-SYNTHELABO-F04200600237

PATIENT
  Sex: Female
  Weight: 80 kg

DRUGS (7)
  1. ELOXATIN [Suspect]
     Indication: COLON CANCER
     Route: 041
     Dates: start: 20061120, end: 20061120
  2. DEXAMETHASONE [Concomitant]
     Indication: PROPHYLAXIS OF NAUSEA AND VOMITING
     Route: 042
     Dates: start: 20061120, end: 20061120
  3. GRANISETRON [Concomitant]
     Indication: PROPHYLAXIS OF NAUSEA AND VOMITING
     Route: 048
     Dates: start: 20061106, end: 20061110
  4. FOLINIC ACID [Concomitant]
     Indication: COLON CANCER
     Route: 041
     Dates: start: 20061120, end: 20061120
  5. FLUOROURACIL [Concomitant]
     Indication: COLON CANCER
     Route: 040
     Dates: start: 20061120, end: 20061120
  6. FLUOROURACIL [Concomitant]
     Route: 041
     Dates: start: 20061120, end: 20061120
  7. CALCIUM MAGNESIUM [Concomitant]
     Indication: PROPHYLAXIS
     Route: 041
     Dates: start: 20061101, end: 20061101

REACTIONS (1)
  - OROPHARYNGEAL SPASM [None]
